FAERS Safety Report 6096108-8 (Version None)
Quarter: 2009Q1

REPORT INFORMATION
  Report Type: 
  Country: None (occurrence: None)
  Receive Date: 20090227
  Receipt Date: 20080904
  Transmission Date: 20090719
  Serious: No
  Sender: FDA-Public Use
  Company Number: A0745948A

PATIENT
  Age: 34 Year
  Sex: Male

DRUGS (4)
  1. LAMICTAL [Suspect]
     Indication: BIPOLAR DISORDER
     Dosage: 25MG TWICE PER DAY
     Route: 048
     Dates: start: 20080801
  2. LITHIUM CARBONATE [Concomitant]
  3. FLUTICASONE PROPIONATE [Concomitant]
     Route: 045
  4. NICOTROL [Concomitant]

REACTIONS (1)
  - CYST [None]
